FAERS Safety Report 21112808 (Version 2)
Quarter: 2022Q3

REPORT INFORMATION
  Report Type: Spontaneous
  Country: PL (occurrence: PL)
  Receive Date: 20220721
  Receipt Date: 20220927
  Transmission Date: 20221026
  Serious: Yes (Hospitalization, Other)
  Sender: FDA-Public Use
  Company Number: PL-VELOXIS PHARMACEUTICALS-2022VELPL-000459

PATIENT
  Age: 55 Year
  Sex: Female

DRUGS (25)
  1. TACROLIMUS [Suspect]
     Active Substance: TACROLIMUS
     Indication: Immunosuppressant drug therapy
     Dosage: UNK
     Dates: start: 201905, end: 2019
  2. GANCICLOVIR [Suspect]
     Active Substance: GANCICLOVIR
     Indication: Cytomegalovirus infection
     Dosage: UNK
  3. VALGANCICLOVIR [Suspect]
     Active Substance: VALGANCICLOVIR
     Indication: Cytomegalovirus infection
     Dosage: UNK
     Dates: start: 2019
  4. FLUCONAZOLE [Suspect]
     Active Substance: FLUCONAZOLE
     Indication: Antifungal prophylaxis
     Dosage: 600 MILLIGRAM (1X600 MG)
     Dates: start: 201905
  5. METHYLPREDNISOLONE [Suspect]
     Active Substance: METHYLPREDNISOLONE
     Indication: Immunosuppressant drug therapy
     Dosage: UNK
     Dates: start: 201905
  6. PREDNISONE [Concomitant]
     Active Substance: PREDNISONE
     Indication: Immunosuppressant drug therapy
     Dosage: UNK
     Dates: start: 201905
  7. INSULIN GLARGINE [Concomitant]
     Active Substance: INSULIN GLARGINE
     Indication: Diabetes mellitus
     Dosage: 12 INTERNATIONAL UNIT, QD AT NIGHT
     Dates: start: 201907
  8. INSULIN GLARGINE [Concomitant]
     Active Substance: INSULIN GLARGINE
     Dosage: 10 INTERNATIONAL UNIT, QD AT NIGHT
     Dates: start: 201907
  9. ORNITHINE [Concomitant]
     Active Substance: ORNITHINE
     Indication: Product used for unknown indication
     Dosage: UNK
     Dates: start: 201905
  10. MICAFUNGIN [Concomitant]
     Active Substance: MICAFUNGIN
     Indication: Oesophageal candidiasis
     Dosage: UNK
     Dates: start: 201906
  11. INSULIN LISPRO [Concomitant]
     Active Substance: INSULIN LISPRO
     Indication: Diabetes mellitus
     Dosage: 8 INTERNATIONAL UNIT, QD (DINNER 6- 8 UNITS)
     Dates: start: 201907
  12. INSULIN LISPRO [Concomitant]
     Active Substance: INSULIN LISPRO
     Dosage: 20 INTERNATIONAL UNIT, QD (8-10 UNITS AT BREAKFAST AND SUPPER)
     Dates: start: 201907
  13. INSULIN LISPRO [Concomitant]
     Active Substance: INSULIN LISPRO
     Dosage: 16 INTERNATIONAL UNIT, QD (8-10 UNITS AT BREAKFAST AND SUPPER)
     Dates: start: 201907
  14. INSULIN LISPRO [Concomitant]
     Active Substance: INSULIN LISPRO
     Dosage: 6 INTERNATIONAL UNIT, QD (DINNER 6- 8 UNITS)
     Dates: start: 201907
  15. NITROGLYCERIN [Concomitant]
     Active Substance: NITROGLYCERIN
     Indication: Hypertension
     Dosage: CONTINOUS
     Dates: start: 201906
  16. VANCOMYCIN [Concomitant]
     Active Substance: VANCOMYCIN
     Indication: Antibiotic prophylaxis
     Dosage: 2 GRAM (2X 1 G)
     Dates: start: 201905
  17. TAZOBACTAM [Concomitant]
     Active Substance: TAZOBACTAM
     Indication: Antibiotic prophylaxis
     Dosage: 13.5 GRAM (3 X4.5 G)
     Dates: start: 201905
  18. MEROPENEM [Concomitant]
     Active Substance: MEROPENEM
     Indication: Antibiotic prophylaxis
     Dosage: 3 GRAM (3 X1 G)
     Dates: start: 201905
  19. AMLODIPINE [Concomitant]
     Active Substance: AMLODIPINE BESYLATE
     Indication: Hypertension
     Dosage: 5 MILLIGRAM, QD
     Dates: start: 201908
  20. CAPTOPRIL [Concomitant]
     Active Substance: CAPTOPRIL
     Indication: Hypertension
     Dosage: UNK
     Route: 060
     Dates: start: 201906
  21. FONDAPARINUX [Concomitant]
     Active Substance: FONDAPARINUX
     Indication: Anticoagulant therapy
     Dosage: UNK
     Dates: start: 201905
  22. TERLIPRESSIN [Concomitant]
     Active Substance: TERLIPRESSIN
     Indication: Product used for unknown indication
     Dosage: INCREASED (5.65 MG IN THE FLOW OF 4 ML/H)
  23. TERLIPRESSIN [Concomitant]
     Active Substance: TERLIPRESSIN
     Dosage: INCREASED AGAIN TO 11.3 MG/24 H
  24. TERLIPRESSIN [Concomitant]
     Active Substance: TERLIPRESSIN
     Dosage: 2 MG GIVEN BY A CONTINUOUS INTRAVENOUS INFUSION OF 2 ML/H
     Route: 042
  25. MYCOPHENOLATE MOFETIL [Concomitant]
     Active Substance: MYCOPHENOLATE MOFETIL
     Indication: Product used for unknown indication
     Dosage: 250 MILLIGRAM, BID
     Route: 048

REACTIONS (5)
  - Chronic kidney disease [Recovering/Resolving]
  - Overdose [Recovered/Resolved]
  - Toxicity to various agents [Recovered/Resolved]
  - Oesophageal candidiasis [Unknown]
  - Product use in unapproved indication [Unknown]

NARRATIVE: CASE EVENT DATE: 20190901
